FAERS Safety Report 11360291 (Version 1)
Quarter: 2015Q3

REPORT INFORMATION
  Report Type: Report from Study
  Country: US (occurrence: US)
  Receive Date: 20150810
  Receipt Date: 20150810
  Transmission Date: 20151125
  Serious: No
  Sender: FDA-Public Use
  Company Number: PHEH2014US019602

PATIENT
  Age: 59 Year
  Sex: Female

DRUGS (1)
  1. EXTAVIA [Suspect]
     Active Substance: INTERFERON BETA-1B
     Indication: MULTIPLE SCLEROSIS
     Dosage: 0.25 MG, EVERY OTHER
     Route: 058
     Dates: start: 20140918, end: 20140918

REACTIONS (4)
  - Rash [Recovered/Resolved]
  - Pruritus generalised [Recovered/Resolved]
  - Urticaria [Unknown]
  - Nausea [Recovered/Resolved]

NARRATIVE: CASE EVENT DATE: 20140919
